FAERS Safety Report 4559210-5 (Version None)
Quarter: 2005Q1

REPORT INFORMATION
  Report Type: 
  Country: None (occurrence: None)
  Receive Date: 20050124
  Receipt Date: 20041215
  Transmission Date: 20050727
  Serious: Yes (Hospitalization, Disabling, Other)
  Sender: FDA-Public Use
  Company Number: US-MERCK-0412USA02059

PATIENT
  Age: 78 Year
  Sex: Female

DRUGS (6)
  1. ZOCOR [Suspect]
     Indication: HYPERLIPIDAEMIA
     Route: 048
     Dates: start: 19960306, end: 20040801
  2. VERAPAMIL [Suspect]
     Route: 048
     Dates: start: 19960306, end: 20040101
  3. GEMFIBROZIL [Suspect]
     Route: 048
     Dates: start: 20040331, end: 20040101
  4. HYDROCHLOROTHIAZIDE [Concomitant]
     Route: 048
  5. ATENOLOL [Concomitant]
     Route: 065
  6. QUINAPRIL HYDROCHLORIDE [Concomitant]
     Route: 065

REACTIONS (4)
  - CONFUSIONAL STATE [None]
  - DEHYDRATION [None]
  - DRUG INTERACTION [None]
  - MUSCULAR WEAKNESS [None]
